FAERS Safety Report 20640412 (Version 1)
Quarter: 2022Q1

REPORT INFORMATION
  Report Type: Spontaneous
  Country: US (occurrence: US)
  Receive Date: 20220327
  Receipt Date: 20220327
  Transmission Date: 20220423
  Serious: No
  Sender: FDA-Public Use
  Company Number: US-SA-SAC20220321000999

PATIENT
  Sex: Male

DRUGS (5)
  1. AUBAGIO [Suspect]
     Active Substance: TERIFLUNOMIDE
     Indication: Multiple sclerosis
     Dosage: 14 MG, QD
     Route: 048
  2. FISH OIL [Concomitant]
     Active Substance: FISH OIL
  3. FLONASE [Concomitant]
     Active Substance: FLUTICASONE PROPIONATE
  4. TADALAFIL [Concomitant]
     Active Substance: TADALAFIL
  5. VITAMINS NOS [Concomitant]
     Active Substance: VITAMINS

REACTIONS (1)
  - Blood pressure increased [Unknown]
